FAERS Safety Report 11773179 (Version 1)
Quarter: 2015Q4

REPORT INFORMATION
  Report Type: Spontaneous
  Country: US (occurrence: US)
  Receive Date: 20151124
  Receipt Date: 20151124
  Transmission Date: 20160304
  Serious: No
  Sender: FDA-Public Use
  Company Number: US-BAXALTA-2015BLT002871

PATIENT
  Sex: Female

DRUGS (3)
  1. GAMMAGARD LIQUID [Suspect]
     Active Substance: HUMAN IMMUNOGLOBULIN G
     Indication: MYELITIS TRANSVERSE
     Dosage: UNK, EVERY 2 WK
     Route: 042
     Dates: start: 2012
  2. GAMMAGARD LIQUID [Suspect]
     Active Substance: HUMAN IMMUNOGLOBULIN G
     Indication: SJOGREN^S SYNDROME
  3. GAMMAGARD LIQUID [Suspect]
     Active Substance: HUMAN IMMUNOGLOBULIN G
     Indication: OFF LABEL USE

REACTIONS (2)
  - Inability to afford medication [Unknown]
  - Disease progression [Unknown]

NARRATIVE: CASE EVENT DATE: 20150701
